FAERS Safety Report 7132433-7 (Version None)
Quarter: 2010Q4

REPORT INFORMATION
  Report Type: 
  Country: None (occurrence: None)
  Receive Date: 20101130
  Receipt Date: 20101130
  Transmission Date: 20110411
  Serious: Yes (Death)
  Sender: FDA-Public Use
  Company Number: None

PATIENT
  Age: 75 Year
  Sex: Male
  Weight: 69.4 kg

DRUGS (13)
  1. CYTOXAN [Suspect]
     Indication: B PRECURSOR TYPE ACUTE LEUKAEMIA
     Dates: start: 20100401, end: 20100601
  2. DAUNORUBICIN [Suspect]
  3. VINCRISTINE [Suspect]
  4. PREDNISONE [Suspect]
  5. ASPARAGINASE [Suspect]
  6. METHOTREXATE [Suspect]
  7. MERCAPTOPURINE [Suspect]
  8. CEFEPIME [Concomitant]
  9. VANCOMYCIN [Concomitant]
  10. IMIPENEM [Concomitant]
  11. DAPTOMYCIN [Concomitant]
  12. CYTARABINE [Concomitant]
  13. METHOTREXATE [Concomitant]

REACTIONS (8)
  - CARDIO-RESPIRATORY ARREST [None]
  - FEBRILE NEUTROPENIA [None]
  - HEPATIC FAILURE [None]
  - HYPOXIA [None]
  - KLEBSIELLA SEPSIS [None]
  - MENTAL STATUS CHANGES [None]
  - PANCYTOPENIA [None]
  - PETECHIAE [None]
